FAERS Safety Report 8005901-3 (Version None)
Quarter: 2011Q4

REPORT INFORMATION
  Report Type: 
  Country: None (occurrence: None)
  Receive Date: 20111223
  Receipt Date: 20111215
  Transmission Date: 20120403
  Serious: Yes (Other)
  Sender: FDA-Public Use
  Company Number: FR-BMSGILMSD-2011-0048302

PATIENT
  Age: 50 Year
  Sex: Male

DRUGS (1)
  1. ATRIPLA [Suspect]
     Indication: HIV INFECTION
     Dosage: 1 DF, QD
     Dates: start: 20100101

REACTIONS (3)
  - STRESS FRACTURE [None]
  - BONE PAIN [None]
  - FEMUR FRACTURE [None]
